FAERS Safety Report 17272297 (Version 3)
Quarter: 2020Q2

REPORT INFORMATION
  Report Type: Report from Study
  Country: None (occurrence: US)
  Receive Date: 20200115
  Receipt Date: 20200602
  Transmission Date: 20200713
  Serious: Yes (Hospitalization)
  Sender: FDA-Public Use
  Company Number: US-ABBVIE-20K-163-3229925-00

PATIENT
  Age: 76 Year
  Sex: Male
  Weight: 66.28 kg

DRUGS (15)
  1. DIPHENOXYLATE/ATROPINE [Concomitant]
     Active Substance: ATROPINE\DIPHENOXYLATE
     Indication: DIARRHOEA
  2. CREON [Suspect]
     Active Substance: PANCRELIPASE AMYLASE\PANCRELIPASE LIPASE\PANCRELIPASE PROTEASE
     Dosage: 2 CAPSULES WITH A SNACK IN THE MORNING AND A SNACK AT NIGHT.?3 CAPSULES WITH EACH MEAL.
     Route: 048
  3. CARVEDILOL. [Concomitant]
     Active Substance: CARVEDILOL
     Indication: HYPERTENSION
  4. FAMOTIDINE. [Concomitant]
     Active Substance: FAMOTIDINE
     Indication: GASTROOESOPHAGEAL REFLUX DISEASE
  5. CREON [Suspect]
     Active Substance: PANCRELIPASE AMYLASE\PANCRELIPASE LIPASE\PANCRELIPASE PROTEASE
     Dosage: 2 CAPSULES AT LUNCH 2 CAPSULES AT DINNER
     Route: 048
     Dates: start: 201911, end: 2019
  6. CALCITRIOL. [Concomitant]
     Active Substance: CALCITRIOL
     Indication: PRODUCT USED FOR UNKNOWN INDICATION
  7. VITAMIN D/CALCIUM CITRATE [Concomitant]
     Indication: ANAEMIA
  8. ALLOPURINOL. [Concomitant]
     Active Substance: ALLOPURINOL
     Indication: PRODUCT USED FOR UNKNOWN INDICATION
  9. WARFARIN [Concomitant]
     Active Substance: WARFARIN
     Indication: ANTICOAGULANT THERAPY
  10. CREON [Suspect]
     Active Substance: PANCRELIPASE AMYLASE\PANCRELIPASE LIPASE\PANCRELIPASE PROTEASE
     Indication: PANCREATIC FAILURE
     Dosage: 3 CAPS 36,000 UNITS LIPASE WITH EVERY MEAL AND 2 CAPS WITH EVERY SNACK
     Route: 048
     Dates: start: 201712
  11. CHOLECALCIFEROL [Concomitant]
     Active Substance: CHOLECALCIFEROL
     Indication: ANAEMIA
  12. TEMAZEPAM. [Concomitant]
     Active Substance: TEMAZEPAM
     Indication: SLEEP DISORDER THERAPY
  13. CREON [Suspect]
     Active Substance: PANCRELIPASE AMYLASE\PANCRELIPASE LIPASE\PANCRELIPASE PROTEASE
     Route: 048
     Dates: start: 201906, end: 201911
  14. AMIODARONE [Concomitant]
     Active Substance: AMIODARONE
     Indication: CARDIAC DISORDER
  15. ATORVASTATIN [Concomitant]
     Active Substance: ATORVASTATIN
     Indication: BLOOD CHOLESTEROL INCREASED

REACTIONS (14)
  - Atrial fibrillation [Recovered/Resolved]
  - Cardiac pacemaker insertion [Unknown]
  - Oedema peripheral [Unknown]
  - Product administration error [Not Recovered/Not Resolved]
  - Fatigue [Unknown]
  - Abdominal distension [Unknown]
  - Drug ineffective [Not Recovered/Not Resolved]
  - Fluid retention [Recovered/Resolved]
  - Weight decreased [Recovered/Resolved]
  - Flatulence [Unknown]
  - Cardiac pacemaker insertion [Recovered/Resolved]
  - Atrial fibrillation [Recovered/Resolved]
  - Weight increased [Unknown]
  - Diarrhoea [Recovered/Resolved]

NARRATIVE: CASE EVENT DATE: 201911
